FAERS Safety Report 4592432-6 (Version None)
Quarter: 2005Q1

REPORT INFORMATION
  Report Type: 
  Country: None (occurrence: None)
  Receive Date: 20050228
  Receipt Date: 20050125
  Transmission Date: 20050727
  Serious: No
  Sender: FDA-Public Use
  Company Number: US-BRISTOL-MYERS SQUIBB COMPANY-12837373

PATIENT
  Age: 58 Year
  Sex: Female
  Weight: 95 kg

DRUGS (6)
  1. ABILIFY [Suspect]
     Indication: DEPRESSION
     Dosage: DECREASED TO 15 MG/DAY AFTER APPROX 6 MONTHS
     Route: 048
  2. ABILIFY [Suspect]
     Indication: PARANOIA
     Dosage: DECREASED TO 15 MG/DAY AFTER APPROX 6 MONTHS
     Route: 048
  3. ABILIFY [Suspect]
     Indication: SCHIZOPHRENIA
     Dosage: DECREASED TO 15 MG/DAY AFTER APPROX 6 MONTHS
     Route: 048
  4. DEPAKOTE [Concomitant]
  5. EVISTA [Concomitant]
  6. COGENTIN [Concomitant]

REACTIONS (1)
  - TREMOR [None]
